FAERS Safety Report 20419159 (Version 1)
Quarter: 2022Q1

REPORT INFORMATION
  Report Type: Spontaneous
  Country: US (occurrence: US)
  Receive Date: 20220203
  Receipt Date: 20220203
  Transmission Date: 20220423
  Serious: No
  Sender: FDA-Public Use
  Company Number: US-AUROBINDO-AUR-APL-2021-015540

PATIENT
  Age: 4 Year
  Sex: Male
  Weight: 15.42 kg

DRUGS (3)
  1. CEFDINIR [Suspect]
     Active Substance: CEFDINIR
     Indication: Cough
     Dosage: 5 MILLILITER, DAILY
     Route: 065
     Dates: start: 20210406
  2. CEFDINIR [Suspect]
     Active Substance: CEFDINIR
     Dosage: 5 MILLILITER, DAILY
     Route: 065
     Dates: start: 20210407
  3. CEFDINIR [Suspect]
     Active Substance: CEFDINIR
     Dosage: 5 MILLILITER, DAILY
     Route: 065
     Dates: start: 20210408

REACTIONS (3)
  - Diarrhoea [Not Recovered/Not Resolved]
  - Abdominal pain [Not Recovered/Not Resolved]
  - Product odour abnormal [Unknown]

NARRATIVE: CASE EVENT DATE: 20210406
